FAERS Safety Report 19394485 (Version 1)
Quarter: 2021Q2

REPORT INFORMATION
  Report Type: Spontaneous
  Country: CA (occurrence: CA)
  Receive Date: 20210609
  Receipt Date: 20210609
  Transmission Date: 20210717
  Serious: Yes (Other)
  Sender: FDA-Public Use
  Company Number: CA-SAMSUNG BIOEPIS-SB-2021-13848

PATIENT
  Age: 19 Year
  Sex: Male

DRUGS (1)
  1. INFLIXIMAB [Suspect]
     Active Substance: INFLIXIMAB
     Indication: CROHN^S DISEASE
     Route: 042

REACTIONS (9)
  - Weight increased [Unknown]
  - Off label use [Unknown]
  - Intestinal obstruction [Unknown]
  - Drug level decreased [Unknown]
  - Incorrect dose administered [Unknown]
  - Intentional product use issue [Unknown]
  - Faecal calprotectin increased [Unknown]
  - Blood pressure fluctuation [Unknown]
  - Wrong technique in product usage process [Unknown]
